FAERS Safety Report 18477228 (Version 7)
Quarter: 2021Q2

REPORT INFORMATION
  Report Type: Report from Study
  Country: CO (occurrence: CO)
  Receive Date: 20201107
  Receipt Date: 20210514
  Transmission Date: 20210717
  Serious: Yes (Other)
  Sender: FDA-Public Use
  Company Number: CO-TAKEDA-CO202004534

PATIENT
  Age: 68 Year
  Sex: Male
  Weight: 65 kg

DRUGS (12)
  1. ICATIBANT [Suspect]
     Active Substance: ICATIBANT ACETATE
     Indication: HEREDITARY ANGIOEDEMA
     Dosage: UNK, ADMINISTER 1 PRE?FILLED SYRINGE OF 30 MG/3ML, IN CASE OF ANGIOEDEMA EPISODES, EVERY 6 HOURS
     Route: 058
     Dates: start: 20161101
  2. ICATIBANT [Suspect]
     Active Substance: ICATIBANT ACETATE
     Dosage: UNK, ADMINISTER 1 PRE?FILLED SYRINGE OF 30 MG/3ML, IN CASE OF ANGIOEDEMA EPISODES, EVERY 6 HOURS
     Route: 058
     Dates: start: 20200131, end: 20200131
  3. ICATIBANT [Suspect]
     Active Substance: ICATIBANT ACETATE
     Indication: HEREDITARY ANGIOEDEMA
     Dosage: UNK, ADMINISTER 1 PRE?FILLED SYRINGE OF 30 MG/3ML, IN CASE OF ANGIOEDEMA EPISODES, EVERY 6 HOURS
     Route: 058
     Dates: start: 20161101
  4. ICATIBANT [Suspect]
     Active Substance: ICATIBANT ACETATE
     Dosage: 30 MILLIGRAM/MILLIGRAM PER MILLILITRE, Q6HR
     Route: 058
     Dates: start: 20161101
  5. ICATIBANT [Suspect]
     Active Substance: ICATIBANT ACETATE
     Dosage: UNK, ADMINISTER 1 PRE?FILLED SYRINGE OF 30 MG/3ML, IN CASE OF ANGIOEDEMA EPISODES, EVERY 6 HOURS
     Route: 058
     Dates: start: 20200131, end: 20200131
  6. ICATIBANT [Suspect]
     Active Substance: ICATIBANT ACETATE
     Dosage: 30MG/3ML, AS REQ^D (EVERY 6 HOURS , MAXIMUM OF 3 IN 24 HOURS)
     Route: 058
     Dates: start: 20200731, end: 20200731
  7. ICATIBANT [Suspect]
     Active Substance: ICATIBANT ACETATE
     Dosage: 30 MILLIGRAM, Q6HR
     Route: 058
     Dates: start: 20161101
  8. ICATIBANT [Suspect]
     Active Substance: ICATIBANT ACETATE
     Dosage: 30MG/3ML, AS REQ^D
     Route: 058
     Dates: start: 20200514, end: 20200514
  9. ICATIBANT [Suspect]
     Active Substance: ICATIBANT ACETATE
     Dosage: 30MG/3ML, AS REQ^D
     Route: 058
     Dates: start: 20200514, end: 20200514
  10. ICATIBANT [Suspect]
     Active Substance: ICATIBANT ACETATE
     Dosage: 30MG/3ML, AS REQ^D (EVERY 6 HOURS , MAXIMUM OF 3 IN 24 HOURS)
     Route: 058
     Dates: start: 20200731, end: 20200731
  11. ICATIBANT [Suspect]
     Active Substance: ICATIBANT ACETATE
     Dosage: 30 MILLIGRAM, Q6HR
     Route: 058
     Dates: start: 20161101
  12. ICATIBANT [Suspect]
     Active Substance: ICATIBANT ACETATE
     Dosage: 30 MILLIGRAM/MILLIGRAM PER MILLILITRE, Q6HR
     Route: 058
     Dates: start: 20161101

REACTIONS (7)
  - Hypertension [Unknown]
  - Pain [Recovered/Resolved]
  - Abdominal pain [Recovered/Resolved]
  - Diarrhoea [Recovered/Resolved]
  - Fatigue [Recovered/Resolved]
  - Type 2 diabetes mellitus [Unknown]
  - Cough [Not Recovered/Not Resolved]

NARRATIVE: CASE EVENT DATE: 20200929
